FAERS Safety Report 15579015 (Version 1)
Quarter: 2018Q4

REPORT INFORMATION
  Report Type: Other
  Country: PT (occurrence: PT)
  Receive Date: 20181102
  Receipt Date: 20181102
  Transmission Date: 20190205
  Serious: Yes (Other)
  Sender: FDA-Public Use
  Company Number: PT-ASPEN-GLO2018PT010921

PATIENT
  Age: 81 Year
  Sex: Female

DRUGS (3)
  1. CHLORAMBUCIL [Suspect]
     Active Substance: CHLORAMBUCIL
     Indication: CHRONIC LYMPHOCYTIC LEUKAEMIA
     Dosage: 0.5 MG, QD, 12 CYCLES.
     Route: 048
     Dates: start: 2014, end: 2014
  2. CHLORAMBUCIL [Suspect]
     Active Substance: CHLORAMBUCIL
     Dosage: UNK
     Route: 048
  3. OBINUTUZUMAB. [Suspect]
     Active Substance: OBINUTUZUMAB
     Indication: CHRONIC LYMPHOCYTIC LEUKAEMIA
     Dosage: ON D1 AND D15; OBINUTUZUMAB 100 MG, IV, ON D1; OBINUTUZUMAB 900 MG, IV, ON D2; AND OBINUTUZUMAB 1000
     Route: 042

REACTIONS (5)
  - Off label use [Unknown]
  - Intentional product use issue [Unknown]
  - Urinary tract infection [Unknown]
  - Infusion related reaction [Unknown]
  - Thrombocytopenia [Unknown]

NARRATIVE: CASE EVENT DATE: 201806
